FAERS Safety Report 10215293 (Version 6)
Quarter: 2020Q4

REPORT INFORMATION
  Report Type: Report from Study
  Country: US (occurrence: US)
  Receive Date: 20140603
  Receipt Date: 20201013
  Transmission Date: 20210113
  Serious: Yes (Hospitalization, Other)
  Sender: FDA-Public Use
  Company Number: US-CELGENEUS-163-21880-14054564

PATIENT
  Age: 81 Year
  Sex: Male
  Weight: 97.7 kg

DRUGS (2)
  1. REVLIMID [Suspect]
     Active Substance: LENALIDOMIDE
     Indication: PLASMA CELL MYELOMA
     Dosage: 10 MILLIGRAM
     Route: 048
     Dates: start: 20110720, end: 20120120
  2. REVLIMID [Suspect]
     Active Substance: LENALIDOMIDE
     Dosage: 5 MILLIGRAM
     Route: 048
     Dates: start: 20120121, end: 20120316

REACTIONS (3)
  - Plasma cell myeloma [Recovered/Resolved]
  - Asthenia [Unknown]
  - Bradycardia [Unknown]

NARRATIVE: CASE EVENT DATE: 20121127
